FAERS Safety Report 10674342 (Version 1)
Quarter: 2014Q4

REPORT INFORMATION
  Report Type: Spontaneous
  Country: US (occurrence: US)
  Receive Date: 20141224
  Receipt Date: 20141224
  Transmission Date: 20150529
  Serious: No
  Sender: FDA-Public Use
  Company Number: US-PFIZER INC-2014350528

PATIENT
  Age: 77 Year
  Sex: Male
  Weight: 77 kg

DRUGS (5)
  1. VIAGRA [Suspect]
     Active Substance: SILDENAFIL CITRATE
     Dosage: 50 MG (CUT 100MG IN HALF), UNK
     Route: 048
  2. VIAGRA [Suspect]
     Active Substance: SILDENAFIL CITRATE
     Dosage: 100 MG, UNK
     Route: 048
  3. LOPRESSOR [Concomitant]
     Active Substance: METOPROLOL TARTRATE
     Indication: BLOOD PRESSURE ABNORMAL
     Dosage: UNK
  4. CRESTOR [Concomitant]
     Active Substance: ROSUVASTATIN CALCIUM
     Indication: BLOOD CHOLESTEROL ABNORMAL
     Dosage: 5 MG, UNK
  5. BABY ASPIRIN [Concomitant]
     Active Substance: ASPIRIN
     Indication: CARDIAC DISORDER
     Dosage: UNK, DAILY

REACTIONS (3)
  - Tinnitus [Not Recovered/Not Resolved]
  - Nasal congestion [Not Recovered/Not Resolved]
  - Hearing impaired [Not Recovered/Not Resolved]
